FAERS Safety Report 7517716-0 (Version None)
Quarter: 2011Q2

REPORT INFORMATION
  Report Type: 
  Country: None (occurrence: None)
  Receive Date: 20110602
  Receipt Date: 20110525
  Transmission Date: 20111010
  Serious: No
  Sender: FDA-Public Use
  Company Number: US-BIOGENIDEC-2011BI003285

PATIENT
  Age: 44 Year
  Sex: Female

DRUGS (1)
  1. TYSABRI [Suspect]
     Indication: MULTIPLE SCLEROSIS
     Route: 042
     Dates: start: 20100512

REACTIONS (13)
  - FATIGUE [None]
  - FORMICATION [None]
  - MULTIPLE ALLERGIES [None]
  - HEADACHE [None]
  - BURNING SENSATION [None]
  - VIBRATORY SENSE INCREASED [None]
  - INAPPROPRIATE AFFECT [None]
  - FACIAL PAIN [None]
  - DEPRESSION [None]
  - SINUS CONGESTION [None]
  - VITAMIN D DECREASED [None]
  - MEMORY IMPAIRMENT [None]
  - BLOOD PRESSURE INCREASED [None]
